FAERS Safety Report 16292456 (Version 2)
Quarter: 2020Q4

REPORT INFORMATION
  Report Type: Spontaneous
  Country: US (occurrence: US)
  Receive Date: 20190509
  Receipt Date: 20201028
  Transmission Date: 20210113
  Serious: Yes (Other)
  Sender: FDA-Public Use
  Company Number: US-ASTRAZENECA-2019SE62807

PATIENT
  Age: 23677 Day
  Sex: Female
  Weight: 117.9 kg

DRUGS (110)
  1. NEXIUM [Suspect]
     Active Substance: ESOMEPRAZOLE MAGNESIUM
     Indication: GASTROOESOPHAGEAL REFLUX DISEASE
     Route: 048
     Dates: start: 199501, end: 201603
  2. NEXIUM [Suspect]
     Active Substance: ESOMEPRAZOLE MAGNESIUM
     Indication: GASTROOESOPHAGEAL REFLUX DISEASE
     Dosage: GENERIC
     Route: 065
     Dates: start: 20100212, end: 20190419
  3. NEXIUM [Suspect]
     Active Substance: ESOMEPRAZOLE MAGNESIUM
     Indication: GASTROOESOPHAGEAL REFLUX DISEASE
     Dosage: GENERIC
     Route: 065
     Dates: start: 20100212, end: 20190419
  4. PRILOSEC OTC [Suspect]
     Active Substance: OMEPRAZOLE MAGNESIUM
     Indication: GASTROOESOPHAGEAL REFLUX DISEASE
     Route: 048
     Dates: start: 199501, end: 201603
  5. DOXYCYCLINE HYCLATE. [Concomitant]
     Active Substance: DOXYCYCLINE HYCLATE
  6. NITROGLYCERIN. [Concomitant]
     Active Substance: NITROGLYCERIN
  7. FLUTICASONE. [Concomitant]
     Active Substance: FLUTICASONE
  8. POTASSIUM CHLORIDE. [Concomitant]
     Active Substance: POTASSIUM CHLORIDE
  9. FLORASTOR [Concomitant]
     Active Substance: SACCHAROMYCES CEREVISIAE
  10. IBUPROFEN. [Concomitant]
     Active Substance: IBUPROFEN
  11. ROBITUSSIN (GUAIFENESIN) [Concomitant]
     Active Substance: GUAIFENESIN
  12. CODEINE [Concomitant]
     Active Substance: CODEINE
  13. ACETAMINOPHEN. [Concomitant]
     Active Substance: ACETAMINOPHEN
  14. PROPOXYPHENE HCL [Concomitant]
     Active Substance: PROPOXYPHENE HYDROCHLORIDE
  15. DROPERIDOL. [Concomitant]
     Active Substance: DROPERIDOL
  16. AVADIA [Concomitant]
  17. PANTOPRAZOLE SODIUM. [Concomitant]
     Active Substance: PANTOPRAZOLE SODIUM
  18. MUCINEX [Concomitant]
     Active Substance: GUAIFENESIN
  19. PIPERACILLIN. [Concomitant]
     Active Substance: PIPERACILLIN SODIUM
  20. ONDANSETRON [Concomitant]
     Active Substance: ONDANSETRON
     Indication: NAUSEA
     Dates: start: 20180107, end: 20190422
  21. CLONAZEPAM. [Concomitant]
     Active Substance: CLONAZEPAM
     Indication: ANXIETY
     Dates: start: 20180108, end: 20190422
  22. URSODIOL. [Concomitant]
     Active Substance: URSODIOL
  23. TRAMADOL. [Concomitant]
     Active Substance: TRAMADOL
  24. INCRUSE ELLIPTA [Concomitant]
     Active Substance: UMECLIDINIUM BROMIDE
  25. LOSARTAN. [Concomitant]
     Active Substance: LOSARTAN
  26. HYDROCORTISONE. [Concomitant]
     Active Substance: HYDROCORTISONE
  27. IMODIUM [Concomitant]
     Active Substance: LOPERAMIDE HYDROCHLORIDE
  28. ELAVIL [Concomitant]
     Active Substance: AMITRIPTYLINE HYDROCHLORIDE
  29. TRIAMTERENE. [Concomitant]
     Active Substance: TRIAMTERENE
  30. MAALOX ANTACID [Concomitant]
     Active Substance: ALUMINUM HYDROXIDE\DIMETHICONE\MAGNESIUM HYDROXIDE
  31. ALDACTONE [Concomitant]
     Active Substance: SPIRONOLACTONE
  32. METFORMIN [Concomitant]
     Active Substance: METFORMIN HYDROCHLORIDE
  33. AMOXICILLIN/CLAVULANATE [Concomitant]
     Active Substance: AMOXICILLIN\CLAVULANATE POTASSIUM
  34. MAGNESIUM OXIDE. [Concomitant]
     Active Substance: MAGNESIUM OXIDE
  35. NEXIUM [Suspect]
     Active Substance: ESOMEPRAZOLE MAGNESIUM
     Indication: GASTROOESOPHAGEAL REFLUX DISEASE
     Route: 048
     Dates: start: 199501, end: 201603
  36. HYDROCODONE BITARTRATE AND ACETAMINOPHEN [Concomitant]
     Active Substance: ACETAMINOPHEN\HYDROCODONE BITARTRATE
  37. SENNA [Concomitant]
     Active Substance: SENNA LEAF\SENNOSIDES\SENNOSIDES A AND B
  38. VITAMIN B12 [Concomitant]
     Active Substance: CYANOCOBALAMIN
  39. ALCOHOL. [Concomitant]
     Active Substance: ALCOHOL
  40. ANTACID [Concomitant]
     Active Substance: ALUMINUM HYDROXIDE\CALCIUM CARBONATE\DIMETHICONE\MAGNESIUM HYDROXIDE
  41. SYNTHROID [Concomitant]
     Active Substance: LEVOTHYROXINE SODIUM
  42. TROPONIN [Concomitant]
  43. PINETHION [Concomitant]
  44. DIOVAN [Concomitant]
     Active Substance: VALSARTAN
  45. PRILOSEC [Suspect]
     Active Substance: OMEPRAZOLE MAGNESIUM
     Indication: GASTROOESOPHAGEAL REFLUX DISEASE
     Route: 048
     Dates: start: 199501, end: 201603
  46. PRILOSEC [Suspect]
     Active Substance: OMEPRAZOLE MAGNESIUM
     Indication: GASTROOESOPHAGEAL REFLUX DISEASE
     Route: 048
     Dates: start: 2011, end: 2016
  47. AMLODIPINE [Concomitant]
     Active Substance: AMLODIPINE BESYLATE
  48. LEVOFLOXACIN. [Concomitant]
     Active Substance: LEVOFLOXACIN
  49. NOVOLIN NOS [Concomitant]
     Active Substance: INSULIN HUMAN
  50. GLUCOCARD [Concomitant]
  51. ATORVASTATIN [Concomitant]
     Active Substance: ATORVASTATIN
  52. METOCLOPRAMIDE. [Concomitant]
     Active Substance: METOCLOPRAMIDE
  53. ZESTRIL [Concomitant]
     Active Substance: LISINOPRIL
  54. ESTROGEN [Concomitant]
     Active Substance: ESTROGENS
  55. ELASA [Concomitant]
  56. ROSIGLITAZONE [Concomitant]
     Active Substance: ROSIGLITAZONE
  57. MORPHINE SULPHATE [Concomitant]
     Active Substance: MORPHINE SULFATE
  58. METOLAZONE. [Concomitant]
     Active Substance: METOLAZONE
  59. FENOFIBRATE. [Concomitant]
     Active Substance: FENOFIBRATE
  60. HYDROCODONE [Concomitant]
     Active Substance: HYDROCODONE
     Indication: PAIN
     Dates: start: 20180107, end: 20190424
  61. CARVEDILOL. [Concomitant]
     Active Substance: CARVEDILOL
  62. LEVOTHYROXINE. [Concomitant]
     Active Substance: LEVOTHYROXINE
  63. BUT/APAP/CAFF [Concomitant]
  64. MYCOLOG [Concomitant]
     Active Substance: GRAMICIDIN\NEOMYCIN SULFATE\NYSTATIN\TRIAMCINOLONE ACETONIDE
  65. PHENERGAN [Concomitant]
     Active Substance: PROMETHAZINE HYDROCHLORIDE
  66. EFFEXOR [Concomitant]
     Active Substance: VENLAFAXINE HYDROCHLORIDE
  67. AVANDIA [Concomitant]
     Active Substance: ROSIGLITAZONE MALEATE
  68. ANUSOL NOS [Concomitant]
     Active Substance: BALSAM PERU\BENZYL BENZOATE\BISMUTH HYDROXIDE\BISMUTH SUBGALLATE\HYDROCORTISONE ACETATE\ZINC OXIDE
  69. DIABETA [Concomitant]
     Active Substance: GLYBURIDE
  70. BUMEX [Concomitant]
     Active Substance: BUMETANIDE
  71. GLYCERIN. [Concomitant]
     Active Substance: GLYCERIN
  72. PRILOSEC OTC [Suspect]
     Active Substance: OMEPRAZOLE MAGNESIUM
     Indication: GASTROOESOPHAGEAL REFLUX DISEASE
     Route: 048
     Dates: start: 200306, end: 200312
  73. ACETAZOLAMIDE. [Concomitant]
     Active Substance: ACETAZOLAMIDE
  74. GABAPENTIN. [Concomitant]
     Active Substance: GABAPENTIN
  75. LEVEMIR [Concomitant]
     Active Substance: INSULIN DETEMIR
  76. VITAMIN C [Concomitant]
     Active Substance: ASCORBIC ACID
  77. BACLOFEN. [Concomitant]
     Active Substance: BACLOFEN
  78. IODINE. [Concomitant]
     Active Substance: IODINE
  79. AMITRIPTYLINE [Concomitant]
     Active Substance: AMITRIPTYLINE
  80. XANAX [Concomitant]
     Active Substance: ALPRAZOLAM
  81. CARDURA [Concomitant]
     Active Substance: DOXAZOSIN MESYLATE
  82. MAXAIR [Concomitant]
     Active Substance: PIRBUTEROL ACETATE
  83. BISACODYL. [Concomitant]
     Active Substance: BISACODYL
  84. GLIPIZIDE. [Concomitant]
     Active Substance: GLIPIZIDE
  85. CEFAZOLIN [Concomitant]
     Active Substance: CEFAZOLIN
  86. IMIPENEM [Concomitant]
     Active Substance: IMIPENEM
  87. BYDUREON [Concomitant]
     Active Substance: EXENATIDE
  88. METHYLPREDNISOLONE. [Concomitant]
     Active Substance: METHYLPREDNISOLONE
  89. MIRTAZAPINE. [Concomitant]
     Active Substance: MIRTAZAPINE
  90. VENLAFAXINE [Concomitant]
     Active Substance: VENLAFAXINE HYDROCHLORIDE
  91. VITAMIN D [Concomitant]
     Active Substance: VITAMIN D NOS
  92. ALBUTEROL. [Concomitant]
     Active Substance: ALBUTEROL
  93. DICLOFENAC [Concomitant]
     Active Substance: DICLOFENAC
  94. DOBUTAMINE [Concomitant]
     Active Substance: DOBUTAMINE HYDROCHLORIDE
  95. SODIUM CHLORIDE. [Concomitant]
     Active Substance: SODIUM CHLORIDE
  96. THERACCINE [Concomitant]
  97. TOBRAMYCIN. [Concomitant]
     Active Substance: TOBRAMYCIN
  98. TRIMETHOPRIM. [Concomitant]
     Active Substance: TRIMETHOPRIM
  99. DOXYCYCLINE. [Concomitant]
     Active Substance: DOXYCYCLINE
     Indication: ANTIBIOTIC LEVEL
     Dates: start: 20180108, end: 20190424
  100. BENADRYL [Concomitant]
     Active Substance: DIPHENHYDRAMINE HYDROCHLORIDE
     Indication: SINUS CONGESTION
     Dates: start: 2014
  101. CHLORHEXIDINE [Concomitant]
     Active Substance: CHLORHEXIDINE
  102. ASPIRIN. [Concomitant]
     Active Substance: ASPIRIN
  103. MYLANTA [Concomitant]
     Active Substance: ALUMINUM HYDROXIDE\DIMETHICONE\MAGNESIUM HYDROXIDE
  104. RESTORIL [Concomitant]
     Active Substance: TEMAZEPAM
  105. MEDROXYPROGEST [Concomitant]
  106. LASIX [Concomitant]
     Active Substance: FUROSEMIDE
  107. ENOXAPARIN [Concomitant]
     Active Substance: ENOXAPARIN
  108. FERRITIN [Concomitant]
     Active Substance: FERRITIN
  109. BENAZEPRIL [Concomitant]
     Active Substance: BENAZEPRIL HYDROCHLORIDE
  110. NYSTATIN. [Concomitant]
     Active Substance: NYSTATIN

REACTIONS (3)
  - Chronic kidney disease [Not Recovered/Not Resolved]
  - Acute kidney injury [Unknown]
  - Renal failure [Not Recovered/Not Resolved]

NARRATIVE: CASE EVENT DATE: 20110302
